FAERS Safety Report 23892367 (Version 1)
Quarter: 2024Q2

REPORT INFORMATION
  Report Type: Spontaneous
  Country: US (occurrence: None)
  Receive Date: 20240524
  Receipt Date: 20240524
  Transmission Date: 20240715
  Serious: No
  Sender: FDA-Public Use
  Company Number: US-ROCHE-3426042

PATIENT
  Sex: Female

DRUGS (1)
  1. OCREVUS [Suspect]
     Active Substance: OCRELIZUMAB
     Indication: Product used for unknown indication
     Dosage: RECEIVED 2ND DOSE OF OCREVUS ON 9/5/23
     Route: 042
     Dates: start: 20230216

REACTIONS (3)
  - Headache [Unknown]
  - Abdominal pain upper [Unknown]
  - Drug ineffective [Unknown]
